FAERS Safety Report 23577015 (Version 4)
Quarter: 2024Q4

REPORT INFORMATION
  Report Type: Spontaneous
  Country: US (occurrence: US)
  Receive Date: 20240228
  Receipt Date: 20241018
  Transmission Date: 20250115
  Serious: No
  Sender: DR REDDYS
  Company Number: US-E2BLSMVVAL-SPO/USA/24/0002861

PATIENT
  Age: 2 Year
  Sex: Female
  Weight: 11.61 kg

DRUGS (3)
  1. JAVYGTOR [Suspect]
     Active Substance: SAPROPTERIN DIHYDROCHLORIDE
     Indication: Phenylketonuria
     Dosage: DISSOLVE 200 MG (TWO 100 MG POWDER PACKETS) IN 4 TO 8 OUNCES OF WATER OR JUICE AND TAKE DAILY (ORALL
     Route: 048
  2. JAVYGTOR [Suspect]
     Active Substance: SAPROPTERIN DIHYDROCHLORIDE
     Indication: Hyperphenylalaninaemia
  3. JAVYGTOR [Suspect]
     Active Substance: SAPROPTERIN DIHYDROCHLORIDE
     Indication: Hyperphenylalaninaemia
     Route: 048

REACTIONS (4)
  - Anger [Recovering/Resolving]
  - Crying [Recovering/Resolving]
  - Circumstance or information capable of leading to medication error [Unknown]
  - Drug ineffective [Unknown]
